FAERS Safety Report 8230717-2 (Version None)
Quarter: 2012Q1

REPORT INFORMATION
  Report Type: 
  Country: None (occurrence: None)
  Receive Date: 20120320
  Receipt Date: 20120305
  Transmission Date: 20120608
  Serious: Yes (Hospitalization)
  Sender: FDA-Public Use
  Company Number: DSJ-2012-04541

PATIENT
  Age: 51 Year
  Sex: Female

DRUGS (3)
  1. SIMVASTATIN [Concomitant]
  2. BENICAR [Suspect]
     Indication: HYPERTENSION
     Dosage: 20 MG (20 MG, 1 IN 1 D),PER ORAL , 40 MG (40 MG, 1 IN 1 D),PER ORAL
     Route: 048
     Dates: start: 20090101, end: 20120226
  3. BENICAR [Suspect]
     Indication: HYPERTENSION
     Dosage: 20 MG (20 MG, 1 IN 1 D),PER ORAL , 40 MG (40 MG, 1 IN 1 D),PER ORAL
     Route: 048
     Dates: start: 20120227

REACTIONS (6)
  - DRUG INEFFECTIVE [None]
  - BLOOD PRESSURE SYSTOLIC INCREASED [None]
  - CONDITION AGGRAVATED [None]
  - DIZZINESS [None]
  - FATIGUE [None]
  - ARRHYTHMIA [None]
